FAERS Safety Report 9604296 (Version 9)
Quarter: 2015Q1

REPORT INFORMATION
  Report Type: Report from Study
  Country: CA (occurrence: CA)
  Receive Date: 20131008
  Receipt Date: 20150115
  Transmission Date: 20150721
  Serious: Yes (Death, Hospitalization, Other)
  Sender: FDA-Public Use
  Company Number: PHHY2013CA016113

PATIENT
  Age: 66 Year
  Sex: Female

DRUGS (4)
  1. CHEMOTHERAPEUTICS [Suspect]
     Active Substance: UNSPECIFIED INGREDIENT
     Indication: PRODUCT USED FOR UNKNOWN INDICATION
     Route: 065
  2. ZOMETA [Suspect]
     Active Substance: ZOLEDRONIC ACID
     Dosage: 4 MG, EVERY 6 MONTHS
     Route: 042
  3. ZOMETA [Suspect]
     Active Substance: ZOLEDRONIC ACID
     Indication: INVASIVE DUCTAL BREAST CARCINOMA
     Dosage: 4 MG, EVERY 8 WEEKS
     Route: 042
  4. ZOMETA [Suspect]
     Active Substance: ZOLEDRONIC ACID
     Indication: METASTASES TO BONE
     Dosage: 4 MG, EVERY 6 WEEKS
     Route: 042
     Dates: start: 20120719

REACTIONS (15)
  - Metastases to central nervous system [Unknown]
  - Gamma-glutamyltransferase decreased [Unknown]
  - Carbohydrate antigen 125 increased [Unknown]
  - Death [Fatal]
  - Body temperature decreased [Unknown]
  - Pain in extremity [Unknown]
  - Blood albumin decreased [Unknown]
  - Phlebitis [Unknown]
  - Intestinal obstruction [Unknown]
  - Blood pressure systolic increased [Unknown]
  - Gastrointestinal disorder [Unknown]
  - Breast cancer [Unknown]
  - Malignant neoplasm progression [Unknown]
  - Blood pressure diastolic decreased [Unknown]
  - Bone lesion [Unknown]

NARRATIVE: CASE EVENT DATE: 20130212
